FAERS Safety Report 9753652 (Version 1)
Quarter: 2013Q4

REPORT INFORMATION
  Report Type: Spontaneous
  Country: PT (occurrence: PT)
  Receive Date: 20131213
  Receipt Date: 20131213
  Transmission Date: 20140711
  Serious: Yes (Death, Other)
  Sender: FDA-Public Use
  Company Number: PHHY2013PT146170

PATIENT
  Age: 24 Year
  Sex: Female

DRUGS (7)
  1. CICLOSPORIN [Suspect]
     Indication: IMMUNOSUPPRESSION
  2. PREDNISONE [Suspect]
     Indication: IMMUNOSUPPRESSION
  3. MYCOPHENOLIC ACID [Suspect]
     Indication: IMMUNOSUPPRESSION
  4. PYRAZINAMIDE [Suspect]
     Indication: TUBERCULOSIS
  5. RIFAMPICIN [Suspect]
     Indication: TUBERCULOSIS
  6. ISONIAZID [Suspect]
     Indication: TUBERCULOSIS
  7. ETHAMBUTOL [Suspect]
     Indication: TUBERCULOSIS

REACTIONS (3)
  - Death [Fatal]
  - Renal transplant failure [Unknown]
  - Hepatotoxicity [Unknown]
